FAERS Safety Report 8106863-0 (Version None)
Quarter: 2012Q1

REPORT INFORMATION
  Report Type: 
  Country: None (occurrence: None)
  Receive Date: 20120202
  Receipt Date: 20120119
  Transmission Date: 20120608
  Serious: Yes (Disabling, Other)
  Sender: FDA-Public Use
  Company Number: GB-MYLANLABS-2012S1001351

PATIENT
  Age: 62 Year
  Sex: Male

DRUGS (9)
  1. DIAZEPAM [Concomitant]
     Indication: MUSCLE SPASMS
     Dates: start: 20101201
  2. NALOXONE HCL [Concomitant]
     Indication: BACK PAIN
     Dates: start: 20101223
  3. LANSOPRAZOLE [Concomitant]
     Indication: DYSPEPSIA
     Dates: start: 20021004
  4. RAMIPRIL [Concomitant]
     Indication: HYPERTENSION
     Dates: start: 20081113
  5. MIRTAZAPINE [Suspect]
     Indication: INSOMNIA
     Dates: start: 20111108, end: 20111117
  6. MIRTAZAPINE [Suspect]
     Indication: DEPRESSION
     Dates: start: 20111108, end: 20111117
  7. AMLODIPINE BESYLATE [Concomitant]
     Indication: HYPERTENSION
     Dates: start: 20111108
  8. MIRTAZAPINE [Suspect]
     Dates: start: 20110818, end: 20111108
  9. MIRTAZAPINE [Suspect]
     Dates: start: 20110818, end: 20111108

REACTIONS (6)
  - HYPERTENSIVE CRISIS [None]
  - IMPAIRED SELF-CARE [None]
  - ANGER [None]
  - HOSTILITY [None]
  - HALLUCINATION, AUDITORY [None]
  - DEPRESSED MOOD [None]
